FAERS Safety Report 9624580 (Version 1)
Quarter: 2013Q4

REPORT INFORMATION
  Report Type: Spontaneous
  Country: US (occurrence: US)
  Receive Date: 20131015
  Receipt Date: 20131015
  Transmission Date: 20140711
  Serious: No
  Sender: FDA-Public Use
  Company Number: US-B.I. PHARMACEUTICALS,INC./RIDGEFIELD-2013-BI-31261BP

PATIENT
  Age: 61 Year
  Sex: Male
  Weight: 93 kg

DRUGS (9)
  1. PRADAXA [Suspect]
     Indication: CEREBROVASCULAR ACCIDENT PROPHYLAXIS
     Dosage: 300 MG
     Route: 048
     Dates: start: 201110
  2. PRADAXA [Suspect]
     Indication: HEART VALVE REPLACEMENT
  3. DIGOXIN [Concomitant]
     Indication: CARDIOMYOPATHY
     Dosage: 0.25 MG
     Route: 048
  4. CARVEDILOL [Concomitant]
     Indication: CARDIOMYOPATHY
     Dosage: 6.25 MG
     Route: 048
  5. METFORMIN [Concomitant]
     Indication: TYPE 2 DIABETES MELLITUS
     Dosage: 2000 MG
     Route: 048
  6. COQ 10 [Concomitant]
     Dosage: 400 MG
     Route: 048
  7. CRESTOR [Concomitant]
     Indication: BLOOD CHOLESTEROL INCREASED
     Dosage: 2.5 MG
     Route: 048
  8. LIBRAX [Concomitant]
     Indication: IRRITABLE BOWEL SYNDROME
     Route: 048
  9. PROTONIX [Concomitant]
     Indication: GASTROOESOPHAGEAL REFLUX DISEASE
     Dosage: 40 MG
     Route: 048

REACTIONS (1)
  - Off label use [Not Recovered/Not Resolved]
